FAERS Safety Report 13706211 (Version 13)
Quarter: 2018Q2

REPORT INFORMATION
  Report Type: Spontaneous
  Country: US (occurrence: US)
  Receive Date: 20170630
  Receipt Date: 20180626
  Transmission Date: 20180711
  Serious: Yes (Death, Hospitalization)
  Sender: FDA-Public Use
  Company Number: US-ACTELION-A-NJ2017-155998

PATIENT
  Age: 68 Year
  Sex: Female
  Weight: 79.82 kg

DRUGS (5)
  1. REMODULIN [Suspect]
     Active Substance: TREPROSTINIL
     Indication: PRODUCT USED FOR UNKNOWN INDICATION
     Dosage: UNK
     Route: 042
  2. ADEMPAS [Concomitant]
     Active Substance: RIOCIGUAT
  3. OPSUMIT [Suspect]
     Active Substance: MACITENTAN
     Indication: PULMONARY ARTERIAL HYPERTENSION
     Dosage: 10 MG, QD
     Route: 048
     Dates: start: 20150726
  4. REMODULIN [Suspect]
     Active Substance: TREPROSTINIL
     Dosage: UNK
     Route: 058
  5. AMLODIPINE [Concomitant]
     Active Substance: AMLODIPINE BESYLATE

REACTIONS (30)
  - Diarrhoea [Unknown]
  - Dyspnoea exertional [Unknown]
  - Fluid retention [Unknown]
  - Infusion site erythema [Recovering/Resolving]
  - Device related infection [Unknown]
  - Hypotension [Unknown]
  - Abdominal pain [Recovered/Resolved]
  - Vomiting [Recovered/Resolved]
  - Chronic respiratory failure [Recovered/Resolved]
  - Pruritus [Unknown]
  - Blood creatinine increased [Recovered/Resolved]
  - Nausea [Recovered/Resolved]
  - Effusion [Recovered/Resolved]
  - Cor pulmonale [Recovered/Resolved]
  - Infusion site pain [Unknown]
  - Pulmonary arterial hypertension [Fatal]
  - Fluid overload [Recovered/Resolved]
  - Pericardial effusion [Recovered/Resolved]
  - Cardiomegaly [Recovered/Resolved]
  - Epistaxis [Unknown]
  - Hyperkalaemia [Recovered/Resolved]
  - Hypoxia [Recovered/Resolved]
  - Pulmonary oedema [Recovered/Resolved]
  - Dyspnoea [Unknown]
  - Generalised oedema [Recovered/Resolved]
  - Cardiac failure congestive [Recovered/Resolved]
  - Ascites [Recovered/Resolved]
  - Infusion site swelling [Unknown]
  - Rash generalised [Unknown]
  - Heart rate increased [Unknown]

NARRATIVE: CASE EVENT DATE: 20170621
